FAERS Safety Report 9310714 (Version 1)
Quarter: 2013Q2

REPORT INFORMATION
  Report Type: Spontaneous
  Country: US (occurrence: US)
  Receive Date: 20130527
  Receipt Date: 20130527
  Transmission Date: 20140414
  Serious: No
  Sender: FDA-Public Use
  Company Number: US-TEVA-407223USA

PATIENT
  Sex: Female
  Weight: 43.13 kg

DRUGS (5)
  1. PROAIR HFA [Suspect]
     Indication: ASTHMA
  2. QVAR [Concomitant]
     Indication: ASTHMA
  3. VYVANSE [Concomitant]
     Indication: ATTENTION DEFICIT/HYPERACTIVITY DISORDER
  4. PERIACTIN [Concomitant]
  5. FISH OIL [Concomitant]

REACTIONS (2)
  - Asthma [Unknown]
  - Cough [Unknown]
